FAERS Safety Report 19386920 (Version 2)
Quarter: 2021Q2

REPORT INFORMATION
  Report Type: Spontaneous
  Country: BG (occurrence: BG)
  Receive Date: 20210607
  Receipt Date: 20210617
  Transmission Date: 20210717
  Serious: Yes (Death, Hospitalization, Other)
  Sender: FDA-Public Use
  Company Number: BG-INCYTE CORPORATION-2020IN002535

PATIENT

DRUGS (1)
  1. JAKAVI [Suspect]
     Active Substance: RUXOLITINIB
     Indication: MYELOFIBROSIS
     Dosage: 20 MG, DAILY
     Route: 048
     Dates: start: 20160428, end: 20210426

REACTIONS (5)
  - Anaemia [Fatal]
  - Thrombocytosis [Recovering/Resolving]
  - COVID-19 [Fatal]
  - Leukocytosis [Recovering/Resolving]
  - Acute respiratory failure [Fatal]

NARRATIVE: CASE EVENT DATE: 20200302
